FAERS Safety Report 8187661-9 (Version None)
Quarter: 2012Q1

REPORT INFORMATION
  Report Type: 
  Country: None (occurrence: None)
  Receive Date: 20120306
  Receipt Date: 20120302
  Transmission Date: 20120608
  Serious: Yes (Other)
  Sender: FDA-Public Use
  Company Number: US-PFIZER INC-2011054234

PATIENT
  Sex: Male

DRUGS (7)
  1. PRILOSEC [Concomitant]
     Indication: ABDOMINAL DISCOMFORT
     Dosage: UNK
     Dates: start: 20030101
  2. CYMBALTA [Concomitant]
     Indication: MENTAL DISORDER
     Dosage: UNK
     Dates: start: 20030101
  3. ADVAIR DISKUS 100/50 [Concomitant]
     Indication: CHRONIC OBSTRUCTIVE PULMONARY DISEASE
     Dosage: UNK
     Dates: start: 20080101
  4. ALBUTEROL [Concomitant]
     Indication: CHRONIC OBSTRUCTIVE PULMONARY DISEASE
     Dosage: UNK
     Dates: start: 20030101
  5. CHANTIX [Suspect]
     Indication: SMOKING CESSATION THERAPY
     Dosage: UNK
     Dates: start: 20090301, end: 20090401
  6. SEROQUEL [Concomitant]
     Indication: MENTAL DISORDER
     Dosage: UNK
     Dates: start: 20030101
  7. ZANTAC [Concomitant]
     Indication: ABDOMINAL DISCOMFORT
     Dosage: UNK
     Dates: start: 20030101

REACTIONS (5)
  - SUICIDE ATTEMPT [None]
  - MAJOR DEPRESSION [None]
  - INJURY [None]
  - INTENTIONAL OVERDOSE [None]
  - ANGER [None]
